FAERS Safety Report 12154138 (Version 1)
Quarter: 2016Q1

REPORT INFORMATION
  Report Type: Report from Study
  Country: AU (occurrence: AU)
  Receive Date: 20160307
  Receipt Date: 20160307
  Transmission Date: 20160526
  Serious: Yes (Hospitalization)
  Sender: FDA-Public Use
  Company Number: AU-ROCHE-1720587

PATIENT
  Age: 91 Year
  Sex: Female

DRUGS (2)
  1. ACTEMRA [Suspect]
     Active Substance: TOCILIZUMAB
     Route: 042
     Dates: start: 20150727
  2. ACTEMRA [Suspect]
     Active Substance: TOCILIZUMAB
     Indication: RHEUMATOID ARTHRITIS
     Route: 042
     Dates: start: 20130527

REACTIONS (4)
  - Dehydration [Unknown]
  - Circulatory collapse [Unknown]
  - Cardiac failure [Unknown]
  - Asthenia [Unknown]

NARRATIVE: CASE EVENT DATE: 20160227
